FAERS Safety Report 13374060 (Version 1)
Quarter: 2017Q1

REPORT INFORMATION
  Report Type: Spontaneous
  Country: US (occurrence: US)
  Receive Date: 20170327
  Receipt Date: 20170327
  Transmission Date: 20170429
  Serious: Yes (Other)
  Sender: FDA-Public Use
  Company Number: US-JNJFOC-20170324467

PATIENT

DRUGS (1)
  1. XARELTO [Suspect]
     Active Substance: RIVAROXABAN
     Indication: PRODUCT USED FOR UNKNOWN INDICATION
     Route: 048
     Dates: start: 201208, end: 201410

REACTIONS (4)
  - Thrombotic thrombocytopenic purpura [Unknown]
  - Internal haemorrhage [Unknown]
  - Gastrointestinal haemorrhage [Unknown]
  - Epistaxis [Unknown]

NARRATIVE: CASE EVENT DATE: 201210
